FAERS Safety Report 12227689 (Version 2)
Quarter: 2016Q2

REPORT INFORMATION
  Report Type: Spontaneous
  Country: US (occurrence: US)
  Receive Date: 20160401
  Receipt Date: 20160427
  Transmission Date: 20160815
  Serious: Yes (Life-Threatening)
  Sender: FDA-Public Use
  Company Number: US-ROCHE-1734439

PATIENT
  Sex: Female
  Weight: 63 kg

DRUGS (1)
  1. XOLAIR [Suspect]
     Active Substance: OMALIZUMAB
     Indication: CHRONIC SPONTANEOUS URTICARIA
     Dosage: DISCONTINUED
     Route: 065
     Dates: start: 20160323, end: 20160323

REACTIONS (1)
  - Anaphylactic reaction [Recovered/Resolved]
